FAERS Safety Report 6283549-9 (Version None)
Quarter: 2009Q3

REPORT INFORMATION
  Report Type: 
  Country: None (occurrence: None)
  Receive Date: 20090724
  Receipt Date: 20090716
  Transmission Date: 20100115
  Serious: Yes (Hospitalization)
  Sender: FDA-Public Use
  Company Number: IE-ABBOTT-09P-229-0586513-00

PATIENT
  Sex: Male

DRUGS (1)
  1. PROSTAP 3 [Suspect]
     Indication: DRUG USE FOR UNKNOWN INDICATION
     Dates: start: 20060101

REACTIONS (4)
  - ARTHRALGIA [None]
  - FATIGUE [None]
  - HAEMATURIA [None]
  - RENAL CANCER [None]
